FAERS Safety Report 6736378-3 (Version None)
Quarter: 2010Q2

REPORT INFORMATION
  Report Type: 
  Country: None (occurrence: None)
  Receive Date: 20100520
  Receipt Date: 20100520
  Transmission Date: 20101027
  Serious: Yes (Other)
  Sender: FDA-Public Use
  Company Number: None

PATIENT
  Sex: Female
  Weight: 73.9363 kg

DRUGS (4)
  1. PEG-INTRON [Suspect]
     Indication: HEPATITIS C
     Dosage: 120 MCG/0.5ML WEEKLY SQ
     Route: 058
     Dates: start: 20100428, end: 20100501
  2. RIBAVIRIN [Suspect]
     Indication: HEPATITIS C
     Dosage: 1200 MG PER DAY 3 CAPS BID PO
     Route: 048
     Dates: start: 20100428, end: 20100501
  3. GABAPENTIN [Concomitant]
  4. CYMBALTA [Concomitant]

REACTIONS (6)
  - ECONOMIC PROBLEM [None]
  - FEELING HOT [None]
  - HEADACHE [None]
  - OEDEMA MOUTH [None]
  - ORAL PAIN [None]
  - STOMATITIS [None]
